FAERS Safety Report 6507850 (Version 3)
Quarter: 2020Q3

REPORT INFORMATION
  Report Type: Spontaneous
  Country: US (occurrence: US)
  Receive Date: 20071218
  Receipt Date: 20200909
  Transmission Date: 20201103
  Serious: Yes (Hospitalization, Other)
  Sender: FDA-Public Use
  Company Number: US-PURDUE-USA_2007_0030208

PATIENT
  Sex: Male

DRUGS (4)
  1. XANAX [Concomitant]
     Active Substance: ALPRAZOLAM
     Indication: PRODUCT USED FOR UNKNOWN INDICATION
     Dosage: .5 MG, UNK
     Route: 048
  2. OXYCONTIN [Suspect]
     Active Substance: OXYCODONE HYDROCHLORIDE
     Indication: PAIN
     Dosage: UNK MG, SEE TEXT
     Route: 048
     Dates: start: 20000608, end: 20001101
  3. NEURONTIN [Concomitant]
     Active Substance: GABAPENTIN
     Indication: PRODUCT USED FOR UNKNOWN INDICATION
     Dosage: 100 MG, UNK
     Route: 048
  4. PERCOCET [Concomitant]
     Active Substance: ACETAMINOPHEN\OXYCODONE HYDROCHLORIDE
     Indication: PRODUCT USED FOR UNKNOWN INDICATION
     Dosage: UNK MG, UNK
     Route: 048

REACTIONS (31)
  - Hospitalisation [Unknown]
  - Balance disorder [None]
  - Mood swings [Unknown]
  - General physical condition abnormal [Unknown]
  - Mental disorder [Unknown]
  - Drug withdrawal syndrome [Unknown]
  - Tinnitus [Unknown]
  - Nausea [Unknown]
  - Rash erythematous [Unknown]
  - Diarrhoea [None]
  - Hypoaesthesia [Unknown]
  - Insomnia [Unknown]
  - Drug dependence [Unknown]
  - Suicidal ideation [Unknown]
  - Tremor [Unknown]
  - Vomiting [Unknown]
  - Chills [Unknown]
  - Paraesthesia [Unknown]
  - Seizure [Unknown]
  - Vision blurred [Unknown]
  - Hyperhidrosis [Unknown]
  - Decreased appetite [Unknown]
  - Loss of consciousness [Unknown]
  - Muscle spasms [Unknown]
  - Chest pain [Unknown]
  - Malaise [Unknown]
  - Headache [Unknown]
  - Hallucination [Unknown]
  - Pain [Unknown]
  - Pyrexia [Unknown]
  - Dizziness [Unknown]
